FAERS Safety Report 7416332-9 (Version None)
Quarter: 2011Q2

REPORT INFORMATION
  Report Type: 
  Country: None (occurrence: None)
  Receive Date: 20110414
  Receipt Date: 20110408
  Transmission Date: 20111010
  Serious: Yes (Hospitalization, Other)
  Sender: FDA-Public Use
  Company Number: US-ABBOTT-11P-163-0718333-00

PATIENT
  Sex: Male
  Weight: 91.708 kg

DRUGS (14)
  1. KEPPRA [Concomitant]
     Indication: PRODUCT USED FOR UNKNOWN INDICATION
  2. SIMCOR [Suspect]
     Indication: HIGH DENSITY LIPOPROTEIN DECREASED
  3. SANCTURA [Concomitant]
     Indication: PRODUCT USED FOR UNKNOWN INDICATION
  4. ZEGERID OTC [Concomitant]
     Indication: GASTROOESOPHAGEAL REFLUX DISEASE
     Dosage: 2 TABLETS IN THE MORNING
     Route: 048
  5. LEXAPRO [Concomitant]
     Indication: PRODUCT USED FOR UNKNOWN INDICATION
  6. PLAVIX [Concomitant]
     Indication: CORONARY ARTERY OCCLUSION
     Dates: start: 20110201
  7. TRIBENZOR [Concomitant]
     Indication: PRODUCT USED FOR UNKNOWN INDICATION
  8. NIASPAN [Suspect]
     Indication: LOW DENSITY LIPOPROTEIN INCREASED
     Dosage: DAILY AT HOUR OF SLEEP
     Route: 048
     Dates: start: 20060101, end: 20110301
  9. DOMPERIDONE [Concomitant]
     Indication: GASTROOESOPHAGEAL REFLUX DISEASE
  10. SYNTHROID [Concomitant]
     Indication: PRODUCT USED FOR UNKNOWN INDICATION
  11. SIMCOR [Suspect]
     Indication: LOW DENSITY LIPOPROTEIN INCREASED
     Dates: start: 20100401
  12. NIASPAN [Suspect]
     Indication: HIGH DENSITY LIPOPROTEIN DECREASED
  13. ASPIRIN [Concomitant]
     Indication: PRODUCT USED FOR UNKNOWN INDICATION
  14. FOLIC ACID [Concomitant]
     Indication: PRODUCT USED FOR UNKNOWN INDICATION

REACTIONS (11)
  - CORONARY ARTERY OCCLUSION [None]
  - CARDIAC STRESS TEST ABNORMAL [None]
  - DRUG INEFFECTIVE [None]
  - FALL [None]
  - HEAD INJURY [None]
  - PAIN IN EXTREMITY [None]
  - LOSS OF CONSCIOUSNESS [None]
  - MOBILITY DECREASED [None]
  - HIGH DENSITY LIPOPROTEIN DECREASED [None]
  - SUBDURAL HAEMATOMA [None]
  - CHEST PAIN [None]
